FAERS Safety Report 22082348 (Version 1)
Quarter: 2023Q1

REPORT INFORMATION
  Report Type: Other
  Country: US (occurrence: None)
  Receive Date: 20230310
  Receipt Date: 20230310
  Transmission Date: 20230417
  Serious: Yes (Other)
  Sender: FDA-Public Use
  Company Number: US-ROCHE-2801769

PATIENT
  Age: 62 Year
  Sex: Female

DRUGS (1)
  1. OCREVUS [Suspect]
     Active Substance: OCRELIZUMAB
     Indication: Relapsing multiple sclerosis
     Dosage: DATE OF TREATMENT: 04/SEP/2019, 19/SEP/2019, 21/MAR/2020, 26/SEP/2020, 17/MAR/2021
     Route: 042
     Dates: start: 20190904

REACTIONS (1)
  - Multiple sclerosis relapse [Unknown]
